FAERS Safety Report 16876694 (Version 2)
Quarter: 2022Q1

REPORT INFORMATION
  Report Type: Spontaneous
  Country: DE (occurrence: DE)
  Receive Date: 20191002
  Receipt Date: 20220104
  Transmission Date: 20220424
  Serious: Yes (Other)
  Sender: FDA-Public Use
  Company Number: ALC2019DE000832

PATIENT

DRUGS (24)
  1. CYCLOPENTOLATE HYDROCHLORIDE [Suspect]
     Active Substance: CYCLOPENTOLATE HYDROCHLORIDE
     Indication: Pseudomonas infection
     Dosage: UNK
     Route: 061
  2. CYCLOPENTOLATE HYDROCHLORIDE [Suspect]
     Active Substance: CYCLOPENTOLATE HYDROCHLORIDE
     Indication: Ulcerative keratitis
     Dosage: UNK
     Route: 061
  3. CYCLOPENTOLATE HYDROCHLORIDE [Suspect]
     Active Substance: CYCLOPENTOLATE HYDROCHLORIDE
     Indication: Serratia infection
     Dosage: UNK
     Route: 061
  4. POLIHEXANIDE [Suspect]
     Active Substance: POLIHEXANIDE
     Indication: Pseudomonas infection
     Dosage: UNK
     Route: 061
  5. POLIHEXANIDE [Suspect]
     Active Substance: POLIHEXANIDE
     Indication: Ulcerative keratitis
     Dosage: UNK
     Route: 061
  6. POLIHEXANIDE [Suspect]
     Active Substance: POLIHEXANIDE
     Indication: Serratia infection
     Dosage: UNK
     Route: 061
  7. ACETAZOLAMIDE [Suspect]
     Active Substance: ACETAZOLAMIDE
     Indication: Ulcerative keratitis
     Dosage: UNK
     Route: 048
  8. ACETAZOLAMIDE [Suspect]
     Active Substance: ACETAZOLAMIDE
     Indication: Serratia infection
     Dosage: UNK
     Route: 065
  9. ACETAZOLAMIDE [Suspect]
     Active Substance: ACETAZOLAMIDE
     Indication: Pseudomonas infection
     Dosage: UNK
     Route: 065
  10. PROPAMIDINE ISETHIONATE [Suspect]
     Active Substance: PROPAMIDINE ISETHIONATE
     Indication: Serratia infection
     Dosage: UNK
     Route: 061
  11. PROPAMIDINE ISETHIONATE [Suspect]
     Active Substance: PROPAMIDINE ISETHIONATE
     Indication: Ulcerative keratitis
     Dosage: UNK
     Route: 061
  12. PROPAMIDINE ISETHIONATE [Suspect]
     Active Substance: PROPAMIDINE ISETHIONATE
     Indication: Pseudomonas infection
     Dosage: UNK
     Route: 061
  13. OFLOXACIN [Suspect]
     Active Substance: OFLOXACIN
     Indication: Ulcerative keratitis
     Dosage: UNK
     Route: 061
  14. OFLOXACIN [Suspect]
     Active Substance: OFLOXACIN
     Indication: Serratia infection
     Dosage: UNK
     Route: 061
  15. OFLOXACIN [Suspect]
     Active Substance: OFLOXACIN
     Indication: Pseudomonas infection
     Dosage: UNK
     Route: 061
  16. CEFTRIAXONE [Suspect]
     Active Substance: CEFTRIAXONE
     Indication: Pseudomonas infection
     Dosage: UNK
     Route: 065
  17. CEFTRIAXONE [Suspect]
     Active Substance: CEFTRIAXONE
     Indication: Ulcerative keratitis
     Dosage: UNK
     Route: 042
  18. CEFTRIAXONE [Suspect]
     Active Substance: CEFTRIAXONE
     Indication: Serratia infection
     Dosage: UNK
     Route: 065
  19. GRAMICIDIN\NEOMYCIN\POLYMYXIN B SULFATE [Suspect]
     Active Substance: GRAMICIDIN\NEOMYCIN\POLYMYXIN B SULFATE
     Indication: Pseudomonas infection
     Dosage: UNK
     Route: 061
  20. GRAMICIDIN\NEOMYCIN\POLYMYXIN B SULFATE [Suspect]
     Active Substance: GRAMICIDIN\NEOMYCIN\POLYMYXIN B SULFATE
     Indication: Serratia infection
     Dosage: UNK
     Route: 061
  21. GRAMICIDIN\NEOMYCIN\POLYMYXIN B SULFATE [Suspect]
     Active Substance: GRAMICIDIN\NEOMYCIN\POLYMYXIN B SULFATE
     Indication: Ulcerative keratitis
     Dosage: UNK
     Route: 061
  22. CLINDAMYCIN [Suspect]
     Active Substance: CLINDAMYCIN
     Indication: Ulcerative keratitis
     Dosage: UNK
     Route: 042
  23. CLINDAMYCIN [Suspect]
     Active Substance: CLINDAMYCIN
     Indication: Pseudomonas infection
     Dosage: UNK
     Route: 065
  24. CLINDAMYCIN [Suspect]
     Active Substance: CLINDAMYCIN
     Indication: Serratia infection
     Dosage: UNK
     Route: 065

REACTIONS (1)
  - Drug ineffective [Unknown]
